FAERS Safety Report 6104662-2 (Version None)
Quarter: 2009Q1

REPORT INFORMATION
  Report Type: 
  Country: None (occurrence: None)
  Receive Date: 20090304
  Receipt Date: 20090224
  Transmission Date: 20090719
  Serious: Yes (Other)
  Sender: FDA-Public Use
  Company Number: CHPA2009US05218

PATIENT
  Age: 70 Year
  Sex: Female

DRUGS (1)
  1. BENEFIBER W/WHEAT DEXTRIN (NCH) WHEAT DEXTRIN) POWDER [Suspect]
     Indication: BOWEL MOVEMENT IRREGULARITY
     Dosage: 2 TSP, QD, ORAL
     Route: 048
     Dates: start: 20081101

REACTIONS (1)
  - POOR PERIPHERAL CIRCULATION [None]
